FAERS Safety Report 20524322 (Version 1)
Quarter: 2022Q1

REPORT INFORMATION
  Report Type: Report from Study
  Country: CA (occurrence: CA)
  Receive Date: 20220228
  Receipt Date: 20220228
  Transmission Date: 20220423
  Serious: Yes (Other)
  Sender: FDA-Public Use
  Company Number: CA-JNJFOC-20220250431

PATIENT
  Age: 15 Year
  Sex: Male

DRUGS (2)
  1. REMICADE [Suspect]
     Active Substance: INFLIXIMAB
     Indication: Juvenile idiopathic arthritis
     Route: 042
     Dates: start: 20210823
  2. REMICADE [Suspect]
     Active Substance: INFLIXIMAB
     Dosage: 4 MG PER KG
     Route: 042

REACTIONS (1)
  - Juvenile idiopathic arthritis [Unknown]
